FAERS Safety Report 8516119-X (Version None)
Quarter: 2012Q3

REPORT INFORMATION
  Report Type: 
  Country: None (occurrence: None)
  Receive Date: 20120717
  Receipt Date: 20120628
  Transmission Date: 20120928
  Serious: No
  Sender: FDA-Public Use
  Company Number: US-ASTRAZENECA-2012SE43893

PATIENT
  Sex: Male

DRUGS (2)
  1. SEROQUEL [Suspect]
     Indication: DEPRESSION
     Route: 048
  2. SEROQUEL [Suspect]
     Route: 048

REACTIONS (7)
  - ANXIETY [None]
  - DIZZINESS [None]
  - HEADACHE [None]
  - ASTHENIA [None]
  - PARAESTHESIA [None]
  - MUSCULAR WEAKNESS [None]
  - INTENTIONAL DRUG MISUSE [None]
